FAERS Safety Report 5222752-3 (Version None)
Quarter: 2007Q1

REPORT INFORMATION
  Report Type: 
  Country: None (occurrence: None)
  Receive Date: 20061208
  Receipt Date: 20060116
  Transmission Date: 20070707
  Serious: Yes (Other)
  Sender: FDA-Public Use
  Company Number: 2006007962

PATIENT
  Age: 71 Year
  Sex: Male
  Weight: 90.7194 kg

DRUGS (4)
  1. VIAGRA [Suspect]
     Indication: ERECTILE DYSFUNCTION
     Dosage: 100 MG (100 MG, 1 AS NECESSARY)
  2. LISINOPRIL [Concomitant]
  3. THYROID TAB [Concomitant]
  4. ORAL ANTIDIABETICS (ORAL ANTIDIABETICS) [Concomitant]

REACTIONS (3)
  - DIARRHOEA [None]
  - ERECTION INCREASED [None]
  - STOMACH DISCOMFORT [None]
